FAERS Safety Report 8136496-1 (Version None)
Quarter: 2012Q1

REPORT INFORMATION
  Report Type: 
  Country: None (occurrence: None)
  Receive Date: 20120214
  Receipt Date: 20120201
  Transmission Date: 20120608
  Serious: Yes (Other)
  Sender: FDA-Public Use
  Company Number: FR-ROCHE-1039324

PATIENT
  Sex: Male

DRUGS (4)
  1. LUCENTIS [Suspect]
     Route: 050
     Dates: start: 20120112
  2. LUCENTIS [Suspect]
     Indication: AGE-RELATED MACULAR DEGENERATION
     Route: 050
  3. LUCENTIS [Suspect]
     Route: 050
     Dates: start: 20111101
  4. LUCENTIS [Suspect]
     Route: 050
     Dates: start: 20111201

REACTIONS (4)
  - VISION BLURRED [None]
  - AGE-RELATED MACULAR DEGENERATION [None]
  - DRUG INEFFECTIVE [None]
  - VISUAL ACUITY REDUCED [None]
